FAERS Safety Report 9334936 (Version 1)
Quarter: 2013Q2

REPORT INFORMATION
  Report Type: Spontaneous
  Country: BR (occurrence: BR)
  Receive Date: 20130606
  Receipt Date: 20130606
  Transmission Date: 20140414
  Serious: Yes (Other)
  Sender: FDA-Public Use
  Company Number: BR-SANOFI-AVENTIS-2013SA054683

PATIENT
  Age: 24 Year
  Sex: Female
  Weight: 57 kg

DRUGS (5)
  1. LANTUS [Suspect]
     Indication: TYPE 1 DIABETES MELLITUS
     Route: 058
     Dates: start: 2008
  2. CLIKSTAR [Concomitant]
     Indication: DEVICE THERAPY
  3. COSOPT [Concomitant]
     Indication: VISUAL ACUITY REDUCED
     Route: 048
  4. ENALAPRIL [Concomitant]
     Indication: RENAL IMPAIRMENT
     Route: 048
  5. HUMALOG [Concomitant]
     Indication: TYPE 1 DIABETES MELLITUS
     Route: 058

REACTIONS (2)
  - Retinal detachment [Recovered/Resolved]
  - Visual acuity reduced [Recovered/Resolved]
